FAERS Safety Report 16569028 (Version 1)
Quarter: 2019Q3

REPORT INFORMATION
  Report Type: Spontaneous
  Country: DE (occurrence: DE)
  Receive Date: 20190713
  Receipt Date: 20190713
  Transmission Date: 20191004
  Serious: Yes (Hospitalization)
  Sender: FDA-Public Use
  Company Number: PHHY2019DE161094

PATIENT
  Age: 59 Year
  Sex: Male
  Weight: 81 kg

DRUGS (13)
  1. PIRITRAMIDE [Suspect]
     Active Substance: PIRITRAMIDE
     Indication: PRODUCT USED FOR UNKNOWN INDICATION
     Dosage: UNK (NK NK, INTRAOPERATIVE NARKOSE, INJEKTIONS-/INFUSIONSL?SUNG)
     Route: 042
  2. APROVEL [Concomitant]
     Active Substance: IRBESARTAN
     Indication: PRODUCT USED FOR UNKNOWN INDICATION
     Dosage: 1 DF, QD (75 MG, 0-0-1-0, TABLETTEN)
     Route: 048
  3. METAMIZOLE [Concomitant]
     Active Substance: METAMIZOLE
     Indication: PRODUCT USED FOR UNKNOWN INDICATION
     Dosage: 1 DF, QID (500 MG, 1-1-1-1, BEI BEDARF, TABLETTEN)
     Route: 048
  4. CO APROVEL [Concomitant]
     Active Substance: HYDROCHLOROTHIAZIDE\IRBESARTAN
     Indication: PRODUCT USED FOR UNKNOWN INDICATION
     Dosage: 1 DF, QD (150|12.5 MG, 1-0-0-0, TABLETTEN)
     Route: 048
  5. LEVOFLOXACIN. [Suspect]
     Active Substance: LEVOFLOXACIN
     Indication: PRODUCT USED FOR UNKNOWN INDICATION
     Dosage: UNK (NK NK, NK, ZULETZT AM 19.03.2018, TABLETTEN)
     Route: 048
  6. CEFUROXIME. [Suspect]
     Active Substance: CEFUROXIME
     Indication: PRODUCT USED FOR UNKNOWN INDICATION
     Dosage: UNK (NK NK, EINMALGABE INTRAOPERATIV, INJEKTIONS-/INFUSIONSL?SUNG)
     Route: 042
  7. METOPROLOL. [Concomitant]
     Active Substance: METOPROLOL
     Indication: PRODUCT USED FOR UNKNOWN INDICATION
     Dosage: 0.5 DF, QD (50 MG, 0.5-0-0-0, TABLETTEN)
     Route: 048
  8. PANTOPRAZOL [Concomitant]
     Active Substance: PANTOPRAZOLE SODIUM
     Indication: PRODUCT USED FOR UNKNOWN INDICATION
     Dosage: 1 DF, QD (40 MG, 1-0-0-0, TABLETTEN)
     Route: 048
  9. PROPOFOL. [Suspect]
     Active Substance: PROPOFOL
     Indication: PRODUCT USED FOR UNKNOWN INDICATION
     Dosage: UNK (NK NK, INTRAOPERATIVE NARKOSE, INJEKTIONS-/INFUSIONSL?SUNG)
     Route: 042
  10. ENOXAPARIN [Concomitant]
     Active Substance: ENOXAPARIN
     Indication: PRODUCT USED FOR UNKNOWN INDICATION
     Dosage: UNK (0.4 ML, 1X T?GLICH F?R 4 WOCHEN, INJEKTIONS-/INFUSIONSL?SUNG)
     Route: 058
  11. FENTANYL. [Suspect]
     Active Substance: FENTANYL
     Indication: PRODUCT USED FOR UNKNOWN INDICATION
     Dosage: UNK (NK NK, INTRAOPERATIVE NARKOSE, INJEKTIONS-/INFUSIONSL?SUNG)
     Route: 042
  12. DESFLURANE. [Suspect]
     Active Substance: DESFLURANE
     Indication: PRODUCT USED FOR UNKNOWN INDICATION
     Dosage: UNK (NK NK, INTRAOPERATIVE NARKOSE, INHALATIONSAN?STHETIKUM)
     Route: 055
  13. AKRINOR [Suspect]
     Active Substance: CAFEDRINE HYDROCHLORIDE\THEODRENALINE
     Indication: PRODUCT USED FOR UNKNOWN INDICATION
     Dosage: UNK (NK NK, INTRAOPERATIVE NARKOSE, INJEKTIONS-/INFUSIONSL?SUNG)
     Route: 042

REACTIONS (2)
  - Systemic infection [Unknown]
  - Liver function test abnormal [Unknown]
